FAERS Safety Report 4298502-4 (Version None)
Quarter: 2004Q1

REPORT INFORMATION
  Report Type: 
  Country: None (occurrence: None)
  Receive Date: 20040218
  Receipt Date: 20031203
  Transmission Date: 20041129
  Serious: Yes (Other)
  Sender: FDA-Public Use
  Company Number: US-BRISTOL-MYERS SQUIBB COMPANY-12454013

PATIENT
  Age: 53 Year
  Sex: Female

DRUGS (3)
  1. STADOL [Suspect]
     Dosage: PRESCRIPTIONS DATED 24-DEC-92 THROUGH 17-NOV-97
     Route: 045
  2. PROMETHAZINE [Concomitant]
     Dosage: PRESCRIPTIONS DATED 12-SEP-97 AND 11-NOV-97
  3. PHENERGAN [Concomitant]
     Dosage: PRESCRIPTIONS DATED 29-JUN-94, 6-SEP-94, 22-SEP-94, 11-NOV-94,

REACTIONS (1)
  - DEPENDENCE [None]
